FAERS Safety Report 12156235 (Version 1)
Quarter: 2016Q1

REPORT INFORMATION
  Report Type: Other
  Country: IT (occurrence: IT)
  Receive Date: 20160307
  Receipt Date: 20160307
  Transmission Date: 20160526
  Serious: Yes (Other)
  Sender: FDA-Public Use
  Company Number: IT-MYLANLABS-2016M1008639

PATIENT

DRUGS (2)
  1. PIPERACILLIN, TAZOBACTAM [Suspect]
     Active Substance: PIPERACILLIN SODIUM\TAZOBACTAM SODIUM
     Indication: BRONCHITIS
     Dosage: 2 G DAILY
     Route: 030
  2. TAIPER [Suspect]
     Active Substance: PIPERACILLIN SODIUM\TAZOBACTAM SODIUM
     Indication: BRONCHITIS
     Dosage: 2 G DAILY
     Route: 030

REACTIONS (10)
  - Contusion [Recovering/Resolving]
  - Rash [Recovering/Resolving]
  - Somnolence [Recovering/Resolving]
  - Feeling abnormal [Recovering/Resolving]
  - Hyperhidrosis [Recovering/Resolving]
  - Muscle spasms [None]
  - Myalgia [Recovering/Resolving]
  - Anaphylactic reaction [Recovering/Resolving]
  - Asthenia [None]
  - Fatigue [Recovering/Resolving]

NARRATIVE: CASE EVENT DATE: 20160206
